FAERS Safety Report 15741446 (Version 2)
Quarter: 2019Q1

REPORT INFORMATION
  Report Type: Report from Study
  Country: FR (occurrence: FR)
  Receive Date: 20181219
  Receipt Date: 20190125
  Transmission Date: 20190417
  Serious: Yes (Other)
  Sender: FDA-Public Use
  Company Number: FR-JAZZ-2018-FR-014841

PATIENT

DRUGS (26)
  1. AMOXICILLIN. [Concomitant]
     Active Substance: AMOXICILLIN
     Indication: INFECTION PROPHYLAXIS
     Dosage: 2 G, QD
     Route: 048
     Dates: start: 20170615
  2. ENBREL [Concomitant]
     Active Substance: ETANERCEPT
     Indication: GRAFT VERSUS HOST DISEASE
     Dosage: 25 MG, QD
     Route: 058
     Dates: start: 20171003, end: 20171020
  3. RUXOLITINIB [Concomitant]
     Active Substance: RUXOLITINIB
     Indication: GRAFT VERSUS HOST DISEASE
     Dosage: 20 MG, QD
     Route: 048
     Dates: start: 20180309, end: 20180328
  4. VIREAD [Concomitant]
     Active Substance: TENOFOVIR DISOPROXIL FUMARATE
     Indication: HEPATITIS
     Dosage: 490 MG, QD
     Route: 048
     Dates: start: 20170130, end: 20170711
  5. ZELITREX [Concomitant]
     Active Substance: VALACYCLOVIR HYDROCHLORIDE
     Indication: PROPHYLAXIS
     Dosage: 500 MG, QD
     Route: 048
     Dates: start: 20170602, end: 20170705
  6. TAZOBACTAM [Concomitant]
     Active Substance: TAZOBACTAM
     Indication: INFECTION PROPHYLAXIS
     Dosage: 500 MG, QD
     Route: 042
     Dates: start: 20171005, end: 20171017
  7. VALACICLOVIR [Concomitant]
     Active Substance: VALACYCLOVIR HYDROCHLORIDE
     Indication: PROPHYLAXIS
     Dosage: 500 MG, QD
     Route: 048
     Dates: start: 20170426, end: 20170515
  8. CICLOSPORIN [Suspect]
     Active Substance: CYCLOSPORINE
     Indication: PROPHYLAXIS
     Dosage: 400 MG, QD
     Route: 048
     Dates: start: 20170509, end: 20170622
  9. ZELITREX [Concomitant]
     Active Substance: VALACYCLOVIR HYDROCHLORIDE
     Dosage: 500 MG, QD
     Route: 042
     Dates: start: 20170919, end: 20171010
  10. PENTAMIDINE [Concomitant]
     Active Substance: PENTAMIDINE
     Indication: INFECTION PROPHYLAXIS
     Dosage: 300 MG, QD
     Route: 042
     Dates: start: 20180310, end: 20180601
  11. PANTOPRAZOLE [Concomitant]
     Active Substance: PANTOPRAZOLE
     Indication: PROPHYLAXIS
     Dosage: 80 MG, QD
     Route: 042
     Dates: start: 20170519, end: 20171019
  12. PIPERACILLIN. [Concomitant]
     Active Substance: PIPERACILLIN SODIUM
     Indication: INFECTION
     Dosage: 4 G, QD
     Route: 042
     Dates: start: 20171005, end: 20171017
  13. ISAVUCONAZOLE [Concomitant]
     Active Substance: ISAVUCONAZOLE
     Indication: PROPHYLAXIS
     Dosage: 200 UNK, UNK
     Route: 042
     Dates: start: 20170506, end: 20170527
  14. DEFITELIO [Suspect]
     Active Substance: DEFIBROTIDE SODIUM
     Indication: PROPHYLAXIS
     Dosage: 23 MG/KG, QD
     Route: 042
     Dates: start: 20170502, end: 20170527
  15. MYCOPHENOLATE MOFETIL. [Concomitant]
     Active Substance: MYCOPHENOLATE MOFETIL
     Indication: PROPHYLAXIS
     Dosage: 1000 MG, QD
     Route: 048
     Dates: start: 20170619, end: 20170704
  16. CHOLURSO [Concomitant]
     Active Substance: URSODIOL
     Indication: PROPHYLAXIS
     Dosage: 1 G, QD
     Route: 048
     Dates: start: 20170515, end: 20171127
  17. ENBREL [Concomitant]
     Active Substance: ETANERCEPT
     Dosage: 25 MG, QD
     Route: 058
     Dates: start: 20180312, end: 20180503
  18. CYMEVAN [Concomitant]
     Active Substance: GANCICLOVIR
     Indication: CYTOMEGALOVIRUS INFECTION
     Dosage: 700 MG, QD
     Route: 042
     Dates: start: 20170929, end: 20171010
  19. NEFOPAM HYDROCHLORIDE [Concomitant]
     Active Substance: NEFOPAM HYDROCHLORIDE
     Indication: PAIN
     Dosage: 20 MG, QD
     Route: 042
     Dates: start: 20170929, end: 20171007
  20. BETAMETHASONE. [Concomitant]
     Active Substance: BETAMETHASONE
     Indication: GRAFT VERSUS HOST DISEASE
     Dosage: 120 DROPS, 0.05/PO
     Route: 048
     Dates: start: 20180313, end: 20180406
  21. VORICONAZOLE. [Concomitant]
     Active Substance: VORICONAZOLE
     Indication: PROPHYLAXIS
     Dosage: 400 MG, QD
     Route: 042
     Dates: start: 20180309, end: 20180327
  22. PIPERACILLIN. [Concomitant]
     Active Substance: PIPERACILLIN SODIUM
     Indication: INFECTION PROPHYLAXIS
     Dosage: 4 G, QD
     Route: 042
     Dates: start: 20170506, end: 20170509
  23. CYMEVAN [Concomitant]
     Active Substance: GANCICLOVIR
     Dosage: 500 MG, QD
     Route: 042
     Dates: start: 20180313, end: 20180325
  24. HYDROCORTISONE. [Concomitant]
     Active Substance: HYDROCORTISONE
     Indication: PROPHYLAXIS
     Dosage: 400 MG, QD
     Route: 042
     Dates: start: 20180321, end: 20180324
  25. METHYLPREDNISOLONE ACETATE. [Concomitant]
     Active Substance: METHYLPREDNISOLONE ACETATE
     Indication: GRAFT VERSUS HOST DISEASE
     Dosage: 80 MG, QD
     Route: 042
     Dates: start: 20171006, end: 20171010
  26. TAZOBACTAM [Concomitant]
     Active Substance: TAZOBACTAM
     Indication: INFECTION
     Dosage: 500 MG, QD
     Route: 042
     Dates: start: 20170506, end: 20170509

REACTIONS (9)
  - Septic shock [Recovered/Resolved]
  - Klebsiella infection [Recovered/Resolved]
  - Anaphylactic shock [Recovered/Resolved]
  - Escherichia infection [Recovered/Resolved]
  - Graft versus host disease [Unknown]
  - Gastrointestinal haemorrhage [Recovered/Resolved]
  - Thrombotic microangiopathy [Recovered/Resolved]
  - Red blood cell count decreased [Recovered/Resolved]
  - Ewing^s sarcoma [Unknown]

NARRATIVE: CASE EVENT DATE: 20170509
